FAERS Safety Report 19945446 (Version 3)
Quarter: 2021Q4

REPORT INFORMATION
  Report Type: Spontaneous
  Country: IT (occurrence: None)
  Receive Date: 20211012
  Receipt Date: 20211209
  Transmission Date: 20220303
  Serious: Yes (Other)
  Sender: FDA-Public Use
  Company Number: 2021A768063

PATIENT

DRUGS (1)
  1. BYDUREON BCISE [Suspect]
     Active Substance: EXENATIDE
     Route: 058

REACTIONS (5)
  - Injury associated with device [Unknown]
  - Device issue [Unknown]
  - Device delivery system issue [Unknown]
  - Device failure [Unknown]
  - Device leakage [Unknown]

NARRATIVE: CASE EVENT DATE: 20210801
